FAERS Safety Report 9378105 (Version 3)
Quarter: 2014Q3

REPORT INFORMATION
  Report Type: Spontaneous
  Country: US (occurrence: US)
  Receive Date: 20130701
  Receipt Date: 20140828
  Transmission Date: 20150326
  Serious: Yes (Hospitalization)
  Sender: FDA-Public Use
  Company Number: US-009507513-1306USA014565

PATIENT
  Sex: Female
  Weight: 66.21 kg

DRUGS (1)
  1. NUVARING [Suspect]
     Active Substance: ETHINYL ESTRADIOL\ETONOGESTREL
     Indication: CONTRACEPTION
     Dosage: UNK
     Route: 067
     Dates: start: 201012, end: 201107

REACTIONS (5)
  - Thrombolysis [Unknown]
  - Contusion [Unknown]
  - Deep vein thrombosis [Unknown]
  - Vaginal haemorrhage [Unknown]
  - Thrombolysis [Unknown]

NARRATIVE: CASE EVENT DATE: 20110715
